FAERS Safety Report 7595688-0 (Version None)
Quarter: 2011Q3

REPORT INFORMATION
  Report Type: 
  Country: None (occurrence: None)
  Receive Date: 20110707
  Receipt Date: 20110624
  Transmission Date: 20111222
  Serious: Yes (Hospitalization)
  Sender: FDA-Public Use
  Company Number: CA-ELI_LILLY_AND_COMPANY-CA201106007508

PATIENT
  Age: 44 Year
  Sex: Male

DRUGS (2)
  1. HUMULIN N [Suspect]
  2. HUMALOG [Suspect]

REACTIONS (2)
  - DIABETES MELLITUS [None]
  - VISUAL ACUITY REDUCED [None]
